FAERS Safety Report 9371919 (Version 1)
Quarter: 2013Q2

REPORT INFORMATION
  Report Type: Report from Study
  Country: US (occurrence: US)
  Receive Date: 20130627
  Receipt Date: 20130627
  Transmission Date: 20140414
  Serious: Yes (Other)
  Sender: FDA-Public Use
  Company Number: US-MYLANLABS-2012S1010299

PATIENT
  Age: 56 Year
  Sex: Male

DRUGS (7)
  1. CLOZAPINE TABLETS [Suspect]
     Indication: SCHIZOPHRENIA
     Dates: end: 20120517
  2. CLOZAPINE TABLETS [Suspect]
     Indication: SCHIZOPHRENIA
     Dates: start: 20120717, end: 20120807
  3. CLOZAPINE TABLETS [Suspect]
     Indication: SCHIZOPHRENIA
     Dates: start: 20120717, end: 20120807
  4. SEROQUEL [Concomitant]
     Dates: start: 20110407
  5. COGENTIN [Concomitant]
     Dates: start: 20110407
  6. DEPOKOTE [Concomitant]
     Dates: start: 20110407
  7. PROLIXIN /00000602/ [Concomitant]
     Dates: start: 20120716

REACTIONS (1)
  - Granulocytopenia [Recovered/Resolved]
